FAERS Safety Report 5935617-6 (Version None)
Quarter: 2008Q4

REPORT INFORMATION
  Report Type: 
  Country: None (occurrence: None)
  Receive Date: 20081030
  Receipt Date: 20081028
  Transmission Date: 20090506
  Serious: Yes (Other)
  Sender: FDA-Public Use
  Company Number: B0544108A

PATIENT
  Age: 69 Year
  Sex: Female

DRUGS (1)
  1. CARVEDILOL [Suspect]
     Indication: ESSENTIAL HYPERTENSION
     Route: 048
     Dates: start: 20080701, end: 20081001

REACTIONS (1)
  - CONSTIPATION [None]
